FAERS Safety Report 18177637 (Version 1)
Quarter: 2020Q3

REPORT INFORMATION
  Report Type: Spontaneous
  Country: FR (occurrence: FR)
  Receive Date: 20200821
  Receipt Date: 20200821
  Transmission Date: 20201103
  Serious: Yes (Hospitalization, Other)
  Sender: FDA-Public Use
  Company Number: FR-AUROBINDO-AUR-APL-2020-039666

PATIENT
  Age: 83 Year
  Sex: Female

DRUGS (7)
  1. TEICOPLANINE [Suspect]
     Active Substance: TEICOPLANIN
     Indication: SPONDYLITIS
     Dosage: 600 MILLIGRAM, ONCE A DAY
     Route: 042
     Dates: start: 20200625, end: 20200704
  2. LEVOFLOXACIN. [Suspect]
     Active Substance: LEVOFLOXACIN
     Indication: SPONDYLITIS
     Dosage: 500 MILLIGRAM, ONCE A DAY
     Route: 048
     Dates: start: 20200623, end: 20200714
  3. LOVENOX [Concomitant]
     Active Substance: ENOXAPARIN SODIUM
     Indication: SPONDYLITIS
     Dosage: UNK
     Route: 058
     Dates: start: 20200626
  4. OXYNORMORO [Concomitant]
     Active Substance: OXYCODONE HYDROCHLORIDE
     Indication: PAIN
     Dosage: 5 MILLIGRAM, FOUR TIMES/DAY
     Route: 048
     Dates: start: 20200625
  5. OXYNORMORO [Concomitant]
     Active Substance: OXYCODONE HYDROCHLORIDE
     Indication: SPONDYLITIS
  6. RIFADINE [Suspect]
     Active Substance: RIFAMPIN
     Indication: SPONDYLITIS
     Dosage: 900 MILLIGRAM, ONCE A DAY
     Route: 048
     Dates: start: 20200703, end: 20200714
  7. LOVENOX [Concomitant]
     Active Substance: ENOXAPARIN SODIUM
     Indication: PROPHYLAXIS

REACTIONS (2)
  - Jaundice [Recovering/Resolving]
  - Hyperbilirubinaemia [Recovering/Resolving]

NARRATIVE: CASE EVENT DATE: 20200706
